FAERS Safety Report 17537835 (Version 1)
Quarter: 2020Q1

REPORT INFORMATION
  Report Type: Spontaneous
  Country: US (occurrence: US)
  Receive Date: 20200313
  Receipt Date: 20200313
  Transmission Date: 20200409
  Serious: Yes (Other)
  Sender: FDA-Public Use
  Company Number: US-PFIZER INC-2020107575

PATIENT
  Age: 72 Year
  Sex: Female
  Weight: 131.1 kg

DRUGS (2)
  1. TOVIAZ [Suspect]
     Active Substance: FESOTERODINE FUMARATE
     Indication: URGE INCONTINENCE
     Dosage: 8 MG, 1X/DAY (ONE TABLET DAILY)
  2. MYRBETRIQ [Suspect]
     Active Substance: MIRABEGRON
     Dosage: UNK

REACTIONS (7)
  - Haematuria [Unknown]
  - Nocturia [Unknown]
  - Haemorrhage [Not Recovered/Not Resolved]
  - Constipation [Unknown]
  - Vaginal haemorrhage [Unknown]
  - Dysfunctional uterine bleeding [Unknown]
  - Urinary retention [Recovering/Resolving]

NARRATIVE: CASE EVENT DATE: 20190915
